FAERS Safety Report 25983543 (Version 1)
Quarter: 2025Q4

REPORT INFORMATION
  Report Type: Spontaneous
  Country: US (occurrence: None)
  Receive Date: 20251030
  Receipt Date: 20251030
  Transmission Date: 20260118
  Serious: Yes (Hospitalization)
  Sender: FDA-CTU
  Company Number: None

PATIENT
  Age: 68 Year
  Sex: Female
  Weight: 45.81 kg

DRUGS (1)
  1. JUBBONTI [Suspect]
     Active Substance: DENOSUMAB-BBDZ
     Indication: Osteoporosis
     Route: 058
     Dates: start: 20251030, end: 20251030

REACTIONS (12)
  - Injection related reaction [None]
  - Pallor [None]
  - Hyperhidrosis [None]
  - Unresponsive to stimuli [None]
  - Drooling [None]
  - Vomiting [None]
  - Posturing [None]
  - Muscle rigidity [None]
  - Blood pressure decreased [None]
  - Headache [None]
  - Lip disorder [None]
  - Dyskinesia [None]

NARRATIVE: CASE EVENT DATE: 20251030
